FAERS Safety Report 23476764 (Version 1)
Quarter: 2024Q1

REPORT INFORMATION
  Report Type: Report from Study
  Country: US (occurrence: US)
  Receive Date: 20240204
  Receipt Date: 20240204
  Transmission Date: 20240410
  Serious: No
  Sender: FDA-Public Use
  Company Number: US-EXELIXIS-CABO-23064273

PATIENT
  Sex: Male

DRUGS (2)
  1. CABOMETYX [Suspect]
     Active Substance: CABOZANTINIB S-MALATE
     Indication: Renal cancer
     Dosage: 20 MG, QD
     Route: 048
  2. CABOMETYX [Suspect]
     Active Substance: CABOZANTINIB S-MALATE
     Dosage: 20 MG, QD
     Route: 048
     Dates: end: 20230622

REACTIONS (16)
  - Peripheral swelling [Not Recovered/Not Resolved]
  - Pain in jaw [Unknown]
  - Pain [Not Recovered/Not Resolved]
  - Joint stiffness [Unknown]
  - Stomatitis [Unknown]
  - Pruritus [Unknown]
  - Arthralgia [Unknown]
  - Rash [Unknown]
  - Cough [Unknown]
  - Drug ineffective [Unknown]
  - Fatigue [Unknown]
  - Decreased appetite [Unknown]
  - Weight decreased [Unknown]
  - Nausea [Unknown]
  - Product dose omission issue [Unknown]
  - Constipation [Unknown]
